FAERS Safety Report 23379363 (Version 2)
Quarter: 2024Q1

REPORT INFORMATION
  Report Type: Spontaneous
  Country: US (occurrence: US)
  Receive Date: 20240108
  Receipt Date: 20240109
  Transmission Date: 20240409
  Serious: Yes (Other)
  Sender: FDA-Public Use
  Company Number: US-PFIZER INC-202400000120

PATIENT
  Age: 26 Year
  Sex: Male

DRUGS (8)
  1. HYDROMORPHONE HYDROCHLORIDE [Suspect]
     Active Substance: HYDROMORPHONE HYDROCHLORIDE
     Indication: Drug withdrawal syndrome
     Dosage: 4 MG
     Route: 042
  2. CHLORDIAZEPOXIDE [Concomitant]
     Active Substance: CHLORDIAZEPOXIDE
     Indication: Alcohol withdrawal syndrome
     Dosage: 75 MG, 4X/DAY (Q6H)
     Route: 048
  3. CHLORDIAZEPOXIDE [Concomitant]
     Active Substance: CHLORDIAZEPOXIDE
     Dosage: 375 MG
  4. BUPRENORPHINE [Concomitant]
     Active Substance: BUPRENORPHINE
     Indication: Drug withdrawal syndrome
     Dosage: 40 MG
  5. BUPRENORPHINE\NALOXONE [Concomitant]
     Active Substance: BUPRENORPHINE\NALOXONE
     Indication: Drug withdrawal syndrome
     Dosage: 2 MG/0.5 MG SL X 1 DOSE
     Route: 060
  6. BUPRENORPHINE\NALOXONE [Concomitant]
     Active Substance: BUPRENORPHINE\NALOXONE
     Dosage: 24 MG, THE NEXT 6 HOURS
     Route: 060
  7. BUPRENORPHINE\NALOXONE [Concomitant]
     Active Substance: BUPRENORPHINE\NALOXONE
     Dosage: 8 MG, 3X/DAY
     Route: 060
  8. LORAZEPAM [Concomitant]
     Active Substance: LORAZEPAM
     Indication: Drug withdrawal syndrome
     Dosage: 8 MG
     Route: 042

REACTIONS (2)
  - Condition aggravated [Unknown]
  - Off label use [Unknown]
